FAERS Safety Report 8460861-6 (Version None)
Quarter: 2012Q2

REPORT INFORMATION
  Report Type: 
  Country: None (occurrence: None)
  Receive Date: 20120625
  Receipt Date: 20120619
  Transmission Date: 20120825
  Serious: Yes (Hospitalization)
  Sender: FDA-Public Use
  Company Number: GR-AMGEN-GRCSP2012036710

PATIENT
  Age: 58 Year
  Sex: Female

DRUGS (2)
  1. PROLIA [Suspect]
     Indication: OSTEOPOROSIS
     Dosage: 60 MG, Q6MO
     Dates: start: 20120403
  2. CALCIUM [Concomitant]

REACTIONS (7)
  - RED BLOOD CELL SEDIMENTATION RATE INCREASED [None]
  - HAEMATOCRIT DECREASED [None]
  - TONGUE HAEMORRHAGE [None]
  - DIVERTICULITIS [None]
  - BLOOD IRON DECREASED [None]
  - C-REACTIVE PROTEIN INCREASED [None]
  - SERUM FERRITIN DECREASED [None]
